FAERS Safety Report 5818476-1 (Version None)
Quarter: 2008Q3

REPORT INFORMATION
  Report Type: 
  Country: None (occurrence: None)
  Receive Date: 20080722
  Receipt Date: 20080711
  Transmission Date: 20090109
  Serious: No
  Sender: FDA-Public Use
  Company Number: US-MERCK-0807USA02994B1

PATIENT

DRUGS (2)
  1. SINGULAIR [Suspect]
     Route: 064
  2. SYNTHROID [Concomitant]
     Route: 064

REACTIONS (1)
  - PREMATURE BABY [None]
